FAERS Safety Report 19241891 (Version 4)
Quarter: 2021Q2

REPORT INFORMATION
  Report Type: Spontaneous
  Country: PL (occurrence: PL)
  Receive Date: 20210511
  Receipt Date: 20210629
  Transmission Date: 20210717
  Serious: Yes (Other)
  Sender: FDA-Public Use
  Company Number: PL-SA-2021SA150422

PATIENT
  Sex: Male

DRUGS (9)
  1. OMNIC [Suspect]
     Active Substance: TAMSULOSIN HYDROCHLORIDE
     Dosage: THERAPY DATES: 17?MAY?2021 /UNKNOWN; UNK
     Route: 048
     Dates: start: 20210517
  2. OMNIC [Suspect]
     Active Substance: TAMSULOSIN HYDROCHLORIDE
     Indication: PROSTATIC SPECIFIC ANTIGEN INCREASED
     Dosage: IN THE EVENING AT AROUND 10?11PM), THERAPY DATES: APR?2021 / UNKNOWN
     Route: 048
     Dates: start: 202104
  3. OMNIC OCA [Suspect]
     Active Substance: TAMSULOSIN HYDROCHLORIDE
     Indication: PROSTATIC SPECIFIC ANTIGEN INCREASED
     Dosage: THERAPY DATES: MAR?2021 / UNKNOWN;
     Route: 048
     Dates: start: 202103
  4. BISOCARD [Concomitant]
     Active Substance: BISOPROLOL
     Dosage: UNK
  5. OMNIC OCA [Suspect]
     Active Substance: TAMSULOSIN HYDROCHLORIDE
     Dosage: 1 DF, QD
     Route: 065
     Dates: start: 20210427
  6. OMNIC OCA [Suspect]
     Active Substance: TAMSULOSIN HYDROCHLORIDE
     Dosage: UNK
     Route: 048
     Dates: start: 20210517
  7. COVID?19 VACCINE [Concomitant]
     Dosage: UNK
     Route: 065
  8. ARMOLIPID [Concomitant]
  9. ACARD [ACETYLSALICYLIC ACID] [Concomitant]
     Active Substance: ASPIRIN

REACTIONS (7)
  - Arrhythmia [Not Recovered/Not Resolved]
  - Anxiety [Recovered/Resolved]
  - Product use in unapproved indication [Unknown]
  - Erythema [Recovering/Resolving]
  - Product prescribing error [Unknown]
  - Insomnia [Not Recovered/Not Resolved]
  - Blood pressure abnormal [Unknown]

NARRATIVE: CASE EVENT DATE: 20210427
